FAERS Safety Report 15680071 (Version 1)
Quarter: 2018Q4

REPORT INFORMATION
  Report Type: Spontaneous
  Country: ES (occurrence: ES)
  Receive Date: 20181203
  Receipt Date: 20181203
  Transmission Date: 20190205
  Serious: Yes (Other)
  Sender: FDA-Public Use
  Company Number: ES-TEVA-2018-ES-982776

PATIENT
  Sex: Female

DRUGS (3)
  1. TEMOZOLOMIDE. [Suspect]
     Active Substance: TEMOZOLOMIDE
     Indication: PARAGANGLION NEOPLASM
     Dosage: 75 MG/M2 DAILY; A SCHEDULE OF 3 WEEKS ON FOLLOWED BY 1 WEEK OFF TREATMENT (21/28 DAY REGIMEN)
     Route: 065
     Dates: start: 201509
  2. DENOSUMAB [Concomitant]
     Active Substance: DENOSUMAB
     Indication: PARAGANGLION NEOPLASM
     Route: 065
     Dates: start: 201509
  3. SOMATULINE AUTOGEL [Concomitant]
     Active Substance: LANREOTIDE ACETATE
     Indication: PARAGANGLION NEOPLASM
     Route: 065
     Dates: start: 201509

REACTIONS (1)
  - Lymphopenia [Recovered/Resolved]
